FAERS Safety Report 5240586-0 (Version None)
Quarter: 2007Q1

REPORT INFORMATION
  Report Type: 
  Country: None (occurrence: None)
  Receive Date: 20061208
  Receipt Date: 20051108
  Transmission Date: 20070707
  Serious: Yes (Other)
  Sender: FDA-Public Use
  Company Number: 2005UW16959

PATIENT
  Age: 68 Year
  Sex: Male
  Weight: 87.996 kg

DRUGS (6)
  1. CRESTOR [Suspect]
     Indication: BLOOD CHOLESTEROL INCREASED
     Dosage: 10 MG
     Dates: start: 20051107
  2. GLUCOPHAGE [Concomitant]
  3. PLAVIX [Concomitant]
  4. ACTONEL [Concomitant]
  5. ASPIRIN [Concomitant]
  6. VITAMINS [Concomitant]

REACTIONS (4)
  - ASTHENIA [None]
  - ASTHENOPIA [None]
  - HEADACHE [None]
  - TREMOR [None]
